FAERS Safety Report 20487884 (Version 1)
Quarter: 2022Q1

REPORT INFORMATION
  Report Type: Spontaneous
  Country: US (occurrence: US)
  Receive Date: 20220218
  Receipt Date: 20220218
  Transmission Date: 20220423
  Serious: No
  Sender: FDA-Public Use
  Company Number: US-COLGATE PALMOLIVE COMPANY-20211002276

PATIENT
  Sex: Female

DRUGS (1)
  1. PERIOGARD [Suspect]
     Active Substance: CHLORHEXIDINE GLUCONATE
     Indication: Tooth extraction
     Dosage: 15 ML SEVERAL TIMES A DAY INCLUDING AFTER EATING AND BEFORE BED
     Dates: start: 20211015

REACTIONS (6)
  - Oral pain [Unknown]
  - Burning sensation [Unknown]
  - Tooth discolouration [Unknown]
  - Tongue discolouration [Unknown]
  - Product taste abnormal [Unknown]
  - Pain [Unknown]

NARRATIVE: CASE EVENT DATE: 20211001
